FAERS Safety Report 4320853-5 (Version None)
Quarter: 2004Q1

REPORT INFORMATION
  Report Type: 
  Country: None (occurrence: None)
  Receive Date: 20040322
  Receipt Date: 20040312
  Transmission Date: 20041129
  Serious: Yes (Other)
  Sender: FDA-Public Use
  Company Number: PHBS2004JP03432

PATIENT
  Age: 60 Year
  Sex: Male

DRUGS (5)
  1. FASTIC #AJ [Suspect]
     Indication: DIABETES MELLITUS
     Dosage: 270 MG, QD
     Route: 048
     Dates: start: 20030220
  2. INTERFERON ALFA-2B [Suspect]
     Dosage: 6 MIU/DAY
     Route: 030
     Dates: start: 20030207
  3. URSO [Concomitant]
     Dosage: 300 MG, UNK
  4. REBETOL [Concomitant]
     Dosage: 600 MG, UNK
     Dates: start: 20030207
  5. NORVASC [Concomitant]
     Indication: HYPERTENSION
     Dosage: 5 MG, UNK
     Dates: start: 20010302

REACTIONS (2)
  - DIABETES MELLITUS INADEQUATE CONTROL [None]
  - RETINAL HAEMORRHAGE [None]
